FAERS Safety Report 6171694 (Version 2)
Quarter: 2025Q3

REPORT INFORMATION
  Report Type: Spontaneous
  Country: AE (occurrence: AE)
  Receive Date: 20061121
  Receipt Date: 20250826
  Transmission Date: 20251020
  Serious: Yes (Death, Hospitalization)
  Sender: MERCK SHARP & DOHME LLC
  Company Number: None

PATIENT

DRUGS (2)
  1. CASPOFUNGIN [Suspect]
     Active Substance: CASPOFUNGIN
     Indication: Febrile neutropenia
     Route: 042
     Dates: start: 2002, end: 2002
  2. CASPOFUNGIN [Suspect]
     Active Substance: CASPOFUNGIN
     Indication: Febrile neutropenia
     Dosage: DOSE# 2. STRENGTH: 50 MILLIGRAM
     Route: 042
     Dates: start: 2002

REACTIONS (2)
  - Haematological malignancy [Fatal]
  - Drug ineffective [Unknown]
